FAERS Safety Report 23219302 (Version 1)
Quarter: 2023Q4

REPORT INFORMATION
  Report Type: Spontaneous
  Country: US (occurrence: None)
  Receive Date: 20231121
  Receipt Date: 20231121
  Transmission Date: 20240110
  Serious: Yes (Hospitalization)
  Sender: FDA-Public Use
  Company Number: None

PATIENT
  Age: 75 Year
  Sex: Female
  Weight: 68.10 kg

DRUGS (4)
  1. VENETOCLAX [Suspect]
     Active Substance: VENETOCLAX
     Indication: Acute myeloid leukaemia
     Dosage: 400 MG DAILY ORAL?
     Route: 048
     Dates: start: 20231016, end: 20231103
  2. PRT-1419 [Suspect]
     Active Substance: PRT-1419
     Indication: Acute myeloid leukaemia
     Dosage: 70 MG INTRAVENOUS
     Route: 042
     Dates: start: 20231016, end: 20231023
  3. VANTIN (NAPROXEN) [Concomitant]
     Dates: start: 20230925
  4. MAGNESIUM OXIDE [Concomitant]
     Active Substance: MAGNESIUM OXIDE
     Dates: start: 20230925

REACTIONS (10)
  - Fatigue [None]
  - Dizziness [None]
  - Asthenia [None]
  - Dyspnoea [None]
  - Presyncope [None]
  - Nausea [None]
  - Vomiting [None]
  - Fall [None]
  - Abdominal tenderness [None]
  - Therapy cessation [None]

NARRATIVE: CASE EVENT DATE: 20231106
